FAERS Safety Report 7242918-0 (Version None)
Quarter: 2011Q1

REPORT INFORMATION
  Report Type: 
  Country: None (occurrence: None)
  Receive Date: 20110125
  Receipt Date: 20110112
  Transmission Date: 20110831
  Serious: Yes (Other)
  Sender: FDA-Public Use
  Company Number: FR-ELI_LILLY_AND_COMPANY-FR201011003615

PATIENT
  Age: 48 Year
  Sex: Female
  Weight: 60 kg

DRUGS (2)
  1. CYMBALTA [Suspect]
     Dosage: 30 MG, DAILY (1/D)
     Route: 048
     Dates: start: 20100915, end: 20101015
  2. CYMBALTA [Suspect]
     Indication: MAJOR DEPRESSION
     Dosage: 60 MG, DAILY (1/D)
     Route: 048
     Dates: start: 20100901

REACTIONS (3)
  - ALANINE AMINOTRANSFERASE INCREASED [None]
  - GAMMA-GLUTAMYLTRANSFERASE INCREASED [None]
  - ASPARTATE AMINOTRANSFERASE INCREASED [None]
